FAERS Safety Report 8546652-6 (Version None)
Quarter: 2012Q3

REPORT INFORMATION
  Report Type: 
  Country: None (occurrence: None)
  Receive Date: 20120727
  Receipt Date: 20120307
  Transmission Date: 20120928
  Serious: No
  Sender: FDA-Public Use
  Company Number: US-ASTRAZENECA-2012SE04696

PATIENT
  Age: 43 Year
  Sex: Male
  Weight: 69.4 kg

DRUGS (4)
  1. SEROQUEL [Suspect]
     Route: 048
  2. JANUMET [Concomitant]
     Indication: DIABETES MELLITUS
     Route: 048
  3. SEROQUEL [Suspect]
     Indication: BIPOLAR DISORDER
     Route: 048
  4. LABETALOL HCL [Concomitant]
     Indication: HYPERTENSION

REACTIONS (7)
  - INSOMNIA [None]
  - DRUG WITHDRAWAL SYNDROME [None]
  - ABDOMINAL DISCOMFORT [None]
  - DRUG DOSE OMISSION [None]
  - DRUG DISPENSING ERROR [None]
  - AGITATION [None]
  - PALPITATIONS [None]
